FAERS Safety Report 16861130 (Version 1)
Quarter: 2019Q3

REPORT INFORMATION
  Report Type: Spontaneous
  Country: IE (occurrence: IE)
  Receive Date: 20190927
  Receipt Date: 20190927
  Transmission Date: 20191005
  Serious: Yes (Hospitalization)
  Sender: FDA-Public Use
  Company Number: IE-009507513-1909IRL009438

PATIENT
  Age: 39 Year
  Sex: Female

DRUGS (3)
  1. BUSERELIN ACETATE [Suspect]
     Active Substance: BUSERELIN ACETATE
     Dosage: UNK
  2. GONASI HP [Suspect]
     Active Substance: GONADOTROPHIN, CHORIONIC
     Dosage: 10000 INTERNATIONAL UNIT
  3. PUREGON (FOLLITROPIN BETA) [Suspect]
     Active Substance: FOLLITROPIN
     Dosage: 300 INTERNATIONAL UNIT, Q24H

REACTIONS (4)
  - Abdominal distension [Unknown]
  - Ascites [Unknown]
  - Discomfort [Unknown]
  - Ovarian hyperstimulation syndrome [Unknown]

NARRATIVE: CASE EVENT DATE: 20190805
